FAERS Safety Report 9892619 (Version 2)
Quarter: 2014Q1

REPORT INFORMATION
  Report Type: Report from Study
  Country: CA (occurrence: CA)
  Receive Date: 20140212
  Receipt Date: 20140217
  Transmission Date: 20141002
  Serious: Yes (Other)
  Sender: FDA-Public Use
  Company Number: PHHY2014CA017307

PATIENT
  Age: 93 Year
  Sex: Female

DRUGS (5)
  1. ACLASTA [Suspect]
     Indication: OSTEOPOROSIS
     Dosage: UNK UKN, UNK
     Route: 042
     Dates: start: 20130205
  2. CALCIUM [Concomitant]
     Dosage: UNK UKN, UNK
  3. VITAMIN D [Concomitant]
     Dosage: UNK UKN, UNK
  4. LYRICA [Concomitant]
     Dosage: UNK UKN, UNK
  5. TYLENOL [Concomitant]
     Dosage: UNK UKN, UNK

REACTIONS (1)
  - Hip fracture [Recovering/Resolving]
